FAERS Safety Report 16054193 (Version 1)
Quarter: 2019Q1

REPORT INFORMATION
  Report Type: Spontaneous
  Country: ES (occurrence: ES)
  Receive Date: 20190308
  Receipt Date: 20190308
  Transmission Date: 20190418
  Serious: Yes (Hospitalization)
  Sender: FDA-Public Use
  Company Number: ES-009507513-1903ESP003185

PATIENT
  Age: 56 Year
  Sex: Male

DRUGS (6)
  1. ENALAPRIL MALEATE. [Suspect]
     Active Substance: ENALAPRIL MALEATE
     Dosage: UNKNOWN
     Route: 048
  2. ESCITALOPRAM [Concomitant]
     Active Substance: ESCITALOPRAM OXALATE
     Dosage: UNKNOWN
  3. SITAGLIPTIN PHOSPHATE [Suspect]
     Active Substance: SITAGLIPTIN PHOSPHATE
     Dosage: UNKNOWN
     Route: 048
  4. OMEPRAZOLE. [Concomitant]
     Active Substance: OMEPRAZOLE
     Dosage: UNKNOWN
  5. ALLOPURINOL. [Concomitant]
     Active Substance: ALLOPURINOL
     Dosage: UNKNOWN
  6. LEVOTHYROXINE SODIUM. [Concomitant]
     Active Substance: LEVOTHYROXINE SODIUM
     Dosage: UNKNOWN

REACTIONS (8)
  - Pancreatic failure [Not Recovered/Not Resolved]
  - Acute kidney injury [Unknown]
  - Telangiectasia [Unknown]
  - Alcoholic liver disease [Unknown]
  - Anaemia macrocytic [Recovered/Resolved]
  - Pulmonary mass [Unknown]
  - Alcoholic pancreatitis [Unknown]
  - Ascites [Unknown]

NARRATIVE: CASE EVENT DATE: 2018
